FAERS Safety Report 5096961-0 (Version None)
Quarter: 2006Q3

REPORT INFORMATION
  Report Type: 
  Country: None (occurrence: None)
  Receive Date: 20060831
  Receipt Date: 20060831
  Transmission Date: 20061208
  Serious: Yes (Life-Threatening, Hospitalization)
  Sender: FDA-Public Use
  Company Number: None

PATIENT
  Sex: Female
  Weight: 45.3597 kg

DRUGS (1)
  1. PENICILLIN VK [Suspect]
     Indication: PHARYNGITIS STREPTOCOCCAL
     Dosage: 2 TEASPOONS 2 TIMES PER DAY PO
     Route: 048
     Dates: start: 20060310, end: 20060320

REACTIONS (1)
  - STEVENS-JOHNSON SYNDROME [None]
